FAERS Safety Report 8630190 (Version 3)
Quarter: 2012Q4

REPORT INFORMATION
  Report Type: Spontaneous
  Country: US (occurrence: None)
  Receive Date: 20120608
  Receipt Date: 20120827
  Transmission Date: 20130627
  Serious: Yes (Hospitalization)
  Sender: FDA-Public Use
  Company Number: DSA_57332_2012

PATIENT
  Age: 68 Year
  Sex: Male
  Weight: 63.5 kg

DRUGS (8)
  1. XENAZINE [Suspect]
     Indication: HUNTINGTON^S DISEASE
     Dosage: (12.5 MG BID ORAL), (12.5 MG QD ORAL)
     Route: 048
     Dates: start: 20120429
  2. XENAZINE [Suspect]
     Indication: HUNTINGTON^S DISEASE
     Dosage: (12.5 MG BID ORAL), (12.5 MG QD ORAL)
     Route: 048
     Dates: start: 20120425, end: 201204
  3. LACTULOSE [Suspect]
     Indication: CONSTIPATION
     Dosage: (DF ORAL)
     Route: 048
     Dates: start: 201205
  4. PAXIL CR [Concomitant]
  5. NAMENDA [Concomitant]
  6. BUSPAR [Concomitant]
  7. LORAZEPAM [Concomitant]
  8. OLANZAPINE [Concomitant]

REACTIONS (7)
  - Nausea [None]
  - Vomiting [None]
  - Faecaloma [None]
  - No therapeutic response [None]
  - Cholelithiasis [None]
  - Anxiety [None]
  - Restlessness [None]
